FAERS Safety Report 6170812-5 (Version None)
Quarter: 2009Q2

REPORT INFORMATION
  Report Type: 
  Country: None (occurrence: None)
  Receive Date: 20090427
  Receipt Date: 20090409
  Transmission Date: 20091009
  Serious: Yes (Other)
  Sender: FDA-Public Use
  Company Number: 2009S1002888

PATIENT
  Age: 88 Year
  Sex: Male

DRUGS (6)
  1. PHOSPHOSODA UNFLAVORED [Suspect]
     Indication: COLONOSCOPY
     Dosage: 90 ML;TOTAL;PO
     Route: 048
     Dates: start: 20070712, end: 20070712
  2. ARICEPT [Concomitant]
  3. NAMENDA [Concomitant]
  4. ZOCOR [Concomitant]
  5. PREVACID [Concomitant]
  6. FLURAZEPAM [Concomitant]

REACTIONS (6)
  - EXTRASYSTOLES [None]
  - HYPERNATRAEMIA [None]
  - HYPERPHOSPHATAEMIA [None]
  - HYPOVOLAEMIA [None]
  - RENAL FAILURE [None]
  - VENTRICULAR EXTRASYSTOLES [None]
